FAERS Safety Report 9351000 (Version 1)
Quarter: 2013Q2

REPORT INFORMATION
  Report Type: Report from Study
  Country: DE (occurrence: DE)
  Receive Date: 20130617
  Receipt Date: 20130617
  Transmission Date: 20140414
  Serious: Yes (Hospitalization)
  Sender: FDA-Public Use
  Company Number: DE-TEVA-407339ISR

PATIENT
  Age: 75 Year
  Sex: Female
  Weight: 88 kg

DRUGS (4)
  1. PACLITAXEL [Suspect]
     Indication: OVARIAN CANCER
     Dosage: LAST DOSE PRIOR TO SAE: 08-MAY-2013
     Route: 042
     Dates: start: 20130212, end: 20130508
  2. CARBOPLATIN [Suspect]
     Indication: OVARIAN CANCER
     Dosage: LAST DOSSE PRIOR TO SAE: 08-MAY-2013
     Route: 042
     Dates: start: 20130212, end: 20130508
  3. BEVACIZUMAB [Suspect]
     Indication: OVARIAN CANCER
     Dosage: LAST DOSE PRIOR TO SAE: 17-APR-2013
     Route: 042
     Dates: start: 20130306, end: 20130417
  4. CLONIDIN [Concomitant]
     Indication: HYPERTENSION
     Route: 048

REACTIONS (1)
  - Hypertensive crisis [Recovered/Resolved]
